FAERS Safety Report 7817791-X (Version None)
Quarter: 2011Q4

REPORT INFORMATION
  Report Type: 
  Country: None (occurrence: None)
  Receive Date: 20111017
  Receipt Date: 20111007
  Transmission Date: 20120403
  Serious: Yes (Other)
  Sender: FDA-Public Use
  Company Number: US-BAYER-2011-097003

PATIENT
  Sex: Female

DRUGS (1)
  1. MIRENA [Suspect]
     Dosage: UNK
     Dates: start: 20081001

REACTIONS (4)
  - POLYMENORRHOEA [None]
  - DEVICE DISLOCATION [None]
  - FOLLICULITIS [None]
  - FEELING ABNORMAL [None]
